FAERS Safety Report 9084427 (Version 2)
Quarter: 2013Q1

REPORT INFORMATION
  Report Type: Spontaneous
  Country: JP (occurrence: JP)
  Receive Date: 20130130
  Receipt Date: 20130215
  Transmission Date: 20140127
  Serious: Yes (Life-Threatening, Hospitalization, Other)
  Sender: FDA-Public Use
  Company Number: JP-SANOFI-AVENTIS-2013SA006489

PATIENT
  Age: 66 Year
  Sex: Male
  Weight: 67 kg

DRUGS (9)
  1. LANTUS SOLOSTAR [Suspect]
     Indication: TYPE 1 DIABETES MELLITUS
     Dosage: DOSE:27 UNIT(S)
     Route: 058
     Dates: start: 20081119, end: 20110604
  2. LANTUS SOLOSTAR [Suspect]
     Indication: TYPE 1 DIABETES MELLITUS
     Dosage: BEFORE  BED TIME DOSE:22 UNIT(S)
     Route: 058
     Dates: start: 20110718
  3. LANTUS SOLOSTAR [Suspect]
     Indication: TYPE 1 DIABETES MELLITUS
     Dosage: BEFORE  BED TIME DOSE:26 UNIT(S)
     Route: 058
  4. PIOGLITAZONE [Suspect]
     Indication: TYPE 1 DIABETES MELLITUS
     Route: 048
     Dates: end: 20110602
  5. SOLOSTAR [Suspect]
     Indication: DEVICE THERAPY
     Route: 058
     Dates: start: 20081119
  6. HUMALOG [Suspect]
     Indication: TYPE 1 DIABETES MELLITUS
     Dosage: 27 U MORNING, 44 U NOON, 30 U EVENING DOSE:101 UNIT(S)
     Route: 058
     Dates: start: 20090930
  7. HUMALOG [Suspect]
     Indication: TYPE 1 DIABETES MELLITUS
     Dosage: 9 U MORNING, 13 U NOON, 13 U EVENING DOSE:35 UNIT(S)
     Route: 058
     Dates: start: 20110718
  8. HUMALOG [Suspect]
     Indication: TYPE 1 DIABETES MELLITUS
     Dosage: 16 U MORNING, 21 U NOON, 21 U EVENING DOSE:58 UNIT(S)
     Route: 058
  9. LIPITOR /UNK/ [Concomitant]
     Indication: HYPERLIPIDAEMIA
     Route: 048

REACTIONS (13)
  - Diabetic ketoacidotic hyperglycaemic coma [Recovered/Resolved with Sequelae]
  - Kussmaul respiration [Recovered/Resolved with Sequelae]
  - Blood glucose increased [Recovered/Resolved with Sequelae]
  - Glycosylated haemoglobin increased [Recovered/Resolved with Sequelae]
  - C-reactive protein increased [Recovered/Resolved with Sequelae]
  - Blood pH decreased [Recovered/Resolved with Sequelae]
  - Urine ketone body present [Recovered/Resolved with Sequelae]
  - Disorientation [Recovered/Resolved with Sequelae]
  - Decreased activity [Recovered/Resolved with Sequelae]
  - Haematemesis [Recovered/Resolved with Sequelae]
  - Loss of consciousness [Recovered/Resolved with Sequelae]
  - Hypoglycaemia [Recovered/Resolved with Sequelae]
  - Cognitive disorder [Unknown]
